FAERS Safety Report 9913585 (Version 1)
Quarter: 2014Q1

REPORT INFORMATION
  Report Type: Spontaneous
  Country: US (occurrence: None)
  Receive Date: 20140218
  Receipt Date: 20140218
  Transmission Date: 20141002
  Serious: Yes (Hospitalization)
  Sender: FDA-Public Use
  Company Number: None

PATIENT
  Age: 59 Year
  Sex: Female
  Weight: 51.8 kg

DRUGS (1)
  1. GEMCITABINE HYDROCHLORIDE [Suspect]
     Dates: end: 20140130

REACTIONS (13)
  - Fall [None]
  - Balance disorder [None]
  - Dizziness [None]
  - Head injury [None]
  - Dyspnoea [None]
  - Blood potassium decreased [None]
  - Granulocyte count decreased [None]
  - Platelet count decreased [None]
  - Pleural effusion [None]
  - Atelectasis [None]
  - Pericardial effusion [None]
  - Ascites [None]
  - Generalised oedema [None]
